FAERS Safety Report 16118296 (Version 12)
Quarter: 2019Q4

REPORT INFORMATION
  Report Type: Spontaneous
  Country: US (occurrence: US)
  Receive Date: 20190326
  Receipt Date: 20191031
  Transmission Date: 20200122
  Serious: Yes (Other)
  Sender: FDA-Public Use
  Company Number: US-PFIZER INC-2019130966

PATIENT
  Age: 39 Year
  Sex: Female

DRUGS (2)
  1. LYRICA [Suspect]
     Active Substance: PREGABALIN
     Indication: MULTIPLE SCLEROSIS
     Dosage: 75 MG, 1X/DAY (ONE TABLET BY MOUTH AT BEDTIME)
     Route: 048
  2. LYRICA [Suspect]
     Active Substance: PREGABALIN
     Dosage: 150 MG, DAILY
     Route: 048

REACTIONS (8)
  - Malaise [Unknown]
  - Product use in unapproved indication [Unknown]
  - Vision blurred [Unknown]
  - Seizure [Unknown]
  - Off label use [Unknown]
  - Fatigue [Unknown]
  - Stress [Unknown]
  - Nasopharyngitis [Unknown]
